FAERS Safety Report 10866372 (Version 1)
Quarter: 2015Q1

REPORT INFORMATION
  Report Type: Spontaneous
  Country: US (occurrence: None)
  Receive Date: 20150219
  Receipt Date: 20150219
  Transmission Date: 20150721
  Serious: Yes (Other)
  Sender: FDA-Public Use
  Company Number: None

PATIENT
  Age: 19 Year
  Sex: Female
  Weight: 79.83 kg

DRUGS (1)
  1. NICOTROL [Suspect]
     Active Substance: NICOTINE
     Indication: SMOKING CESSATION THERAPY
     Dosage: 4-12 CARTRUDGES PER DAY
     Dates: start: 20140630, end: 2014

REACTIONS (5)
  - Neonatal tachypnoea [None]
  - Maternal drugs affecting foetus [None]
  - Vaginal haemorrhage [None]
  - Fall [None]
  - Caesarean section [None]

NARRATIVE: CASE EVENT DATE: 20141024
